FAERS Safety Report 4313527-8 (Version None)
Quarter: 2004Q1

REPORT INFORMATION
  Report Type: 
  Country: None (occurrence: None)
  Receive Date: 20040308
  Receipt Date: 20031229
  Transmission Date: 20041129
  Serious: Yes (Hospitalization)
  Sender: FDA-Public Use
  Company Number: JP-GLAXOSMITHKLINE-B0318581A

PATIENT
  Age: 95 Year
  Sex: Female
  Weight: 35 kg

DRUGS (7)
  1. VALTREX [Suspect]
     Indication: HERPES ZOSTER
     Dosage: 3000MG PER DAY
     Route: 048
     Dates: start: 20031219, end: 20031225
  2. DIGOXIN [Suspect]
     Dosage: .125MG PER DAY
     Route: 048
     Dates: start: 20030821, end: 20031227
  3. ACYCLOVIR [Suspect]
     Indication: HERPES ZOSTER
     Dosage: 200MG THREE TIMES PER DAY
     Route: 042
     Dates: start: 20031212, end: 20031218
  4. ZOVIRAX [Suspect]
     Indication: KERATITIS HERPETIC
     Route: 031
     Dates: start: 20031212, end: 20031227
  5. FUROSEMIDE [Concomitant]
     Dosage: 20MG PER DAY
     Dates: start: 20030821
  6. TEMOCAPRIL HYDROCHLORIDE [Concomitant]
     Indication: HYPERTENSION
     Dosage: 2MG PER DAY
     Route: 048
     Dates: end: 20031227
  7. OFLOXACIN EYE DROPS [Concomitant]

REACTIONS (7)
  - ACTIVITIES OF DAILY LIVING IMPAIRED [None]
  - DECREASED APPETITE [None]
  - FACE OEDEMA [None]
  - HERPES ZOSTER [None]
  - OEDEMA [None]
  - RENAL FAILURE ACUTE [None]
  - THERAPEUTIC AGENT TOXICITY [None]
